FAERS Safety Report 6415551-8 (Version None)
Quarter: 2009Q4

REPORT INFORMATION
  Report Type: 
  Country: None (occurrence: None)
  Receive Date: 20091027
  Receipt Date: 20091022
  Transmission Date: 20100525
  Serious: Yes (Hospitalization, Other)
  Sender: FDA-Public Use
  Company Number: FR-BRISTOL-MYERS SQUIBB COMPANY-14791008

PATIENT
  Age: 61 Year
  Sex: Male
  Weight: 110 kg

DRUGS (11)
  1. SPRYCEL [Suspect]
     Indication: ACUTE LYMPHOCYTIC LEUKAEMIA
     Route: 048
     Dates: start: 20090624, end: 20090701
  2. ONCOVIN [Suspect]
     Indication: ACUTE LYMPHOCYTIC LEUKAEMIA
     Route: 042
     Dates: start: 20090624, end: 20090715
  3. DEXAMETHASONE [Suspect]
     Indication: ACUTE LYMPHOCYTIC LEUKAEMIA
     Route: 048
     Dates: start: 20090624, end: 20090715
  4. INIPOMP [Concomitant]
     Dosage: ONE GELATIN CAPSULE IN THE EVENING
  5. BACTRIM DS [Concomitant]
     Dosage: 2 DF=2 TABS 1 TAB AT MORNING AND 1 TABS AT EVENING WEEK END ONLY
  6. ELUDRIL [Concomitant]
  7. ZELITREX [Concomitant]
     Dosage: 4 DF = 4 TABS ZELITREX 500MG 2 TABS AT MORNING 2 TABS AT EVENING
  8. PRIMPERAN [Concomitant]
     Indication: PROPHYLAXIS OF NAUSEA AND VOMITING
     Dosage: 2 TABS
  9. NEULASTA [Concomitant]
     Route: 058
     Dates: start: 20090708
  10. NEUPOGEN [Concomitant]
     Dosage: 1 DF=48 UNIT NOS  INJECTION
     Route: 058
     Dates: start: 20090715
  11. MOUTHWASH [Concomitant]
     Dosage: MOUTHWASH WITH BICARBONATE SERUM AT 14

REACTIONS (3)
  - ACUTE RESPIRATORY DISTRESS SYNDROME [None]
  - INTERSTITIAL LUNG DISEASE [None]
  - PULMONARY FIBROSIS [None]
